FAERS Safety Report 7685252-7 (Version None)
Quarter: 2011Q3

REPORT INFORMATION
  Report Type: 
  Country: None (occurrence: None)
  Receive Date: 20110816
  Receipt Date: 20110810
  Transmission Date: 20111222
  Serious: Yes (Other)
  Sender: FDA-Public Use
  Company Number: US-ELI_LILLY_AND_COMPANY-US201005002550

PATIENT
  Sex: Female
  Weight: 69.388 kg

DRUGS (3)
  1. METFORMIN HCL [Concomitant]
     Indication: DIABETES MELLITUS
  2. TYLENOL                                 /SCH/ [Concomitant]
     Indication: PAIN
  3. BYETTA [Suspect]
     Dosage: UNK, UNK
     Dates: start: 20060801, end: 20080401

REACTIONS (1)
  - PANCREATITIS ACUTE [None]
